FAERS Safety Report 5526515-0 (Version None)
Quarter: 2007Q4

REPORT INFORMATION
  Report Type: 
  Country: None (occurrence: None)
  Receive Date: 20071127
  Receipt Date: 20071114
  Transmission Date: 20080405
  Serious: Yes (Hospitalization)
  Sender: FDA-Public Use
  Company Number: ES-ELI_LILLY_AND_COMPANY-ES200711003773

PATIENT
  Age: 80 Year
  Sex: Female

DRUGS (3)
  1. FORTEO [Suspect]
     Indication: OSTEOPOROSIS
     Dosage: 20 UG, UNKNOWN
     Route: 058
     Dates: start: 20061101, end: 20070801
  2. SINTROM [Concomitant]
  3. ANTIDEPRESSANTS [Concomitant]
     Indication: DEPRESSION

REACTIONS (2)
  - PANCREATITIS [None]
  - PULMONARY OEDEMA [None]
